FAERS Safety Report 7997032-3 (Version None)
Quarter: 2011Q4

REPORT INFORMATION
  Report Type: 
  Country: None (occurrence: None)
  Receive Date: 20111221
  Receipt Date: 20111215
  Transmission Date: 20120403
  Serious: Yes (Death, Other)
  Sender: FDA-Public Use
  Company Number: PHHY2011BR109673

PATIENT
  Age: 82 Year
  Sex: Male

DRUGS (5)
  1. ZOLPIDEM [Concomitant]
     Indication: AGITATION
     Dosage: 1 DF, UNK
  2. BESEROL [Concomitant]
  3. EXELON [Suspect]
     Indication: DEMENTIA ALZHEIMER'S TYPE
     Dosage: 1 DF, BID
  4. EXELON [Suspect]
     Indication: DEMENTIA ALZHEIMER'S TYPE
     Route: 062
  5. MICARDIS [Concomitant]
     Indication: HYPERTENSION
     Dosage: 1 DF, (40/12.5, 70/25)

REACTIONS (3)
  - ASTHENIA [None]
  - CARDIAC ARREST [None]
  - DEATH [None]
